FAERS Safety Report 5720469-X (Version None)
Quarter: 2008Q2

REPORT INFORMATION
  Report Type: 
  Country: None (occurrence: None)
  Receive Date: 20080428
  Receipt Date: 20080417
  Transmission Date: 20081010
  Serious: Yes (Death)
  Sender: FDA-Public Use
  Company Number: JP-PFIZER INC-2008034583

PATIENT
  Age: 86 Year
  Sex: Female

DRUGS (1)
  1. ZYVOX [Suspect]
     Indication: PNEUMONIA
     Dosage: DAILY DOSE:1200MG
     Route: 042

REACTIONS (1)
  - CARDIAC FAILURE [None]
